FAERS Safety Report 18175514 (Version 2)
Quarter: 2020Q3

REPORT INFORMATION
  Report Type: Spontaneous
  Country: PL (occurrence: PL)
  Receive Date: 20200820
  Receipt Date: 20200903
  Transmission Date: 20201103
  Serious: Yes (Other)
  Sender: FDA-Public Use
  Company Number: PL-TEVA-2020-PL-1815785

PATIENT
  Age: 39 Year
  Sex: Female

DRUGS (7)
  1. ESENTIALE FORTE [Concomitant]
  2. DOXORUBICIN [Suspect]
     Active Substance: DOXORUBICIN
     Indication: BREAST CANCER
     Route: 065
  3. PACLITAXEL. [Suspect]
     Active Substance: PACLITAXEL
     Indication: BREAST CANCER
     Route: 065
  4. HEPATIL [Concomitant]
  5. SYLIMAROL [Concomitant]
  6. HEPAREGEN [Concomitant]
  7. XELODA [Concomitant]
     Active Substance: CAPECITABINE

REACTIONS (2)
  - Hepatotoxicity [Recovering/Resolving]
  - Febrile neutropenia [Unknown]
